FAERS Safety Report 8287137-4 (Version None)
Quarter: 2012Q2

REPORT INFORMATION
  Report Type: 
  Country: None (occurrence: None)
  Receive Date: 20120416
  Receipt Date: 20120405
  Transmission Date: 20120825
  Serious: Yes (Other)
  Sender: FDA-Public Use
  Company Number: FR-ROCHE-1057589

PATIENT
  Sex: Female

DRUGS (3)
  1. PEGASYS [Suspect]
     Indication: HEPATITIS C
     Route: 058
  2. COPEGUS [Suspect]
     Indication: HEPATITIS C
     Route: 048
  3. INCIVO [Suspect]
     Indication: HEPATITIS C
     Route: 048
     Dates: end: 20120220

REACTIONS (4)
  - PRURITUS [None]
  - PYREXIA [None]
  - DERMATITIS EXFOLIATIVE [None]
  - DYSPHAGIA [None]
